FAERS Safety Report 19932827 (Version 1)
Quarter: 2021Q4

REPORT INFORMATION
  Report Type: Spontaneous
  Country: IL (occurrence: IL)
  Receive Date: 20211007
  Receipt Date: 20211007
  Transmission Date: 20220303
  Serious: Yes (Life-Threatening, Disabling, Other)
  Sender: FDA-Public Use
  Company Number: None

PATIENT
  Age: 39 Year
  Sex: Male
  Weight: 99 kg

DRUGS (8)
  1. OZEMPIC [Suspect]
     Active Substance: SEMAGLUTIDE
     Indication: Weight control
     Dosage: ?          OTHER FREQUENCY:ONCE A WEEK;
     Route: 058
     Dates: start: 20210707, end: 20210921
  2. CIPRALEX [Concomitant]
     Active Substance: ESCITALOPRAM OXALATE
  3. REBOXETINE [Concomitant]
     Active Substance: REBOXETINE
  4. CLONAZEPAM [Concomitant]
     Active Substance: CLONAZEPAM
  5. FAMOTIDINE [Concomitant]
     Active Substance: FAMOTIDINE
  6. LANSOPRAZOLE [Concomitant]
     Active Substance: LANSOPRAZOLE
  7. FINASTERIDE [Concomitant]
     Active Substance: FINASTERIDE
  8. SIMVASTATIN [Concomitant]
     Active Substance: SIMVASTATIN

REACTIONS (8)
  - Fatigue [None]
  - Somnolence [None]
  - Impaired driving ability [None]
  - Depression [None]
  - Suicidal ideation [None]
  - Affective disorder [None]
  - Condition aggravated [None]
  - Off label use [None]

NARRATIVE: CASE EVENT DATE: 20210912
